FAERS Safety Report 4663506-6 (Version None)
Quarter: 2005Q2

REPORT INFORMATION
  Report Type: 
  Country: None (occurrence: None)
  Receive Date: 20050517
  Receipt Date: 20050511
  Transmission Date: 20051028
  Serious: Yes (Other)
  Sender: FDA-Public Use
  Company Number: CA-GLAXOSMITHKLINE-A0558420A

PATIENT
  Age: 48 Year
  Sex: Male

DRUGS (4)
  1. COMBIVIR [Suspect]
     Indication: ILL-DEFINED DISORDER
     Route: 048
  2. KALETRA [Suspect]
     Route: 048
  3. BACTRIM [Concomitant]
  4. RETROVIR [Concomitant]
     Route: 065

REACTIONS (3)
  - ANAEMIA [None]
  - HAEMOGLOBIN DECREASED [None]
  - THROMBOCYTOPENIA [None]
